FAERS Safety Report 23261574 (Version 1)
Quarter: 2023Q4

REPORT INFORMATION
  Report Type: Spontaneous
  Country: US (occurrence: US)
  Receive Date: 20231205
  Receipt Date: 20231205
  Transmission Date: 20240110
  Serious: Yes (Other)
  Sender: FDA-Public Use
  Company Number: US-drreddys-LIT/USA/23/0187616

PATIENT
  Age: 43 Year
  Sex: Female

DRUGS (3)
  1. CYCLOPHOSPHAMIDE [Suspect]
     Active Substance: CYCLOPHOSPHAMIDE
     Indication: Proteinuria
  2. PREDNISONE [Concomitant]
     Active Substance: PREDNISONE
     Indication: Proteinuria
  3. RITUXIMAB [Concomitant]
     Active Substance: RITUXIMAB
     Indication: Proteinuria

REACTIONS (1)
  - Drug ineffective [Recovering/Resolving]
